FAERS Safety Report 5720076-9 (Version None)
Quarter: 2008Q2

REPORT INFORMATION
  Report Type: 
  Country: None (occurrence: None)
  Receive Date: 20080423
  Receipt Date: 20071009
  Transmission Date: 20081010
  Serious: Yes (Hospitalization)
  Sender: FDA-Public Use
  Company Number: 246995

PATIENT
  Age: 59 Year
  Sex: Male

DRUGS (3)
  1. AVASTIN [Suspect]
     Indication: COLON CANCER
     Dosage: 1/MONTH, INTRAVENOUS
     Route: 042
     Dates: start: 20060101
  2. OXALIPLATIN [Concomitant]
  3. XELODA [Concomitant]

REACTIONS (1)
  - WOUND INFECTION [None]
